FAERS Safety Report 12617191 (Version 1)
Quarter: 2016Q3

REPORT INFORMATION
  Report Type: Spontaneous
  Country: US (occurrence: US)
  Receive Date: 20160803
  Receipt Date: 20160803
  Transmission Date: 20161109
  Serious: Yes (Hospitalization, Other)
  Sender: FDA-Public Use
  Company Number: US-ZYDUS-011789

PATIENT
  Age: 57 Year
  Sex: Female

DRUGS (5)
  1. FOSAMPRENAVIR/FOSAMPRENAVIR CALCIUM [Concomitant]
     Indication: HIV INFECTION
     Route: 065
  2. TENOFOVIR/TENOFOVIR DISOPROXIL FUMARATE [Concomitant]
     Indication: HIV INFECTION
     Route: 065
  3. CLOPIDOGREL [Suspect]
     Active Substance: CLOPIDOGREL BISULFATE
     Indication: PRODUCT USED FOR UNKNOWN INDICATION
     Route: 065
  4. ABACAVIR/LAMIVUDINE [Concomitant]
     Indication: HIV INFECTION
     Route: 065
  5. ETRAVIRINE [Interacting]
     Active Substance: ETRAVIRINE
     Indication: HIV INFECTION
     Route: 065
     Dates: start: 201209

REACTIONS (3)
  - Drug interaction [Unknown]
  - Vascular stent restenosis [Unknown]
  - Chest pain [Recovered/Resolved]

NARRATIVE: CASE EVENT DATE: 201404
